FAERS Safety Report 7164012-X (Version None)
Quarter: 2010Q4

REPORT INFORMATION
  Report Type: 
  Country: None (occurrence: None)
  Receive Date: 20101215
  Receipt Date: 20101213
  Transmission Date: 20110411
  Serious: Yes (Death)
  Sender: FDA-Public Use
  Company Number: A0899616A

PATIENT
  Sex: Male

DRUGS (1)
  1. PROMACTA [Suspect]
     Route: 048
     Dates: start: 20091001

REACTIONS (1)
  - DEATH [None]
